FAERS Safety Report 5041113-3 (Version None)
Quarter: 2006Q2

REPORT INFORMATION
  Report Type: 
  Country: None (occurrence: None)
  Receive Date: 20060601
  Receipt Date: 20060303
  Transmission Date: 20061013
  Serious: No
  Sender: FDA-Public Use
  Company Number: 2006PV009662

PATIENT
  Age: 61 Year
  Sex: Male

DRUGS (1)
  1. BYETTA [Suspect]
     Indication: DRUG USE FOR UNKNOWN INDICATION
     Dosage: 10 MCG;BID;SC, 5 MCG;BID;SC
     Route: 058
     Dates: start: 20050101

REACTIONS (1)
  - DYSGEUSIA [None]
